FAERS Safety Report 6616953-7 (Version None)
Quarter: 2010Q1

REPORT INFORMATION
  Report Type: 
  Country: None (occurrence: None)
  Receive Date: 20100301
  Receipt Date: 20100224
  Transmission Date: 20100710
  Serious: Yes (Hospitalization)
  Sender: FDA-Public Use
  Company Number: 006926

PATIENT
  Sex: Female

DRUGS (5)
  1. KEPPRA [Suspect]
     Indication: ENCEPHALITIS
     Dosage: (2000 MG BID ORAL)
     Route: 048
     Dates: start: 20070101
  2. KEPPRA [Suspect]
     Indication: EPILEPSY
     Dosage: (2000 MG BID ORAL)
     Route: 048
     Dates: start: 20070101
  3. APYDAN /00596701/ [Concomitant]
  4. METOHEXAL /00376902/ [Concomitant]
  5. ENDOXAN /00021101/ [Concomitant]

REACTIONS (5)
  - CONDITION AGGRAVATED [None]
  - CONVULSION [None]
  - DRUG EXPOSURE DURING PREGNANCY [None]
  - PRODUCT QUALITY ISSUE [None]
  - TABLET ISSUE [None]
